FAERS Safety Report 4316014-6 (Version None)
Quarter: 2004Q1

REPORT INFORMATION
  Report Type: 
  Country: None (occurrence: None)
  Receive Date: 20040311
  Receipt Date: 20030808
  Transmission Date: 20041129
  Serious: Yes (Hospitalization)
  Sender: FDA-Public Use
  Company Number: WAES 0308AUS00061

PATIENT
  Age: 33 Year
  Sex: Female
  Weight: 82 kg

DRUGS (2)
  1. CLONIDINE HCL [Concomitant]
     Indication: ECLAMPSIA
     Route: 048
     Dates: start: 20001122
  2. INDOCIN [Suspect]
     Indication: ABDOMINAL PAIN LOWER
     Route: 048
     Dates: start: 20001230, end: 20001230

REACTIONS (4)
  - HEADACHE [None]
  - HYPERTENSIVE CRISIS [None]
  - LABILE BLOOD PRESSURE [None]
  - NECK PAIN [None]
